FAERS Safety Report 9812566 (Version 4)
Quarter: 2017Q4

REPORT INFORMATION
  Report Type: Report from Study
  Country: US (occurrence: US)
  Receive Date: 20140113
  Receipt Date: 20171201
  Transmission Date: 20180321
  Serious: Yes (Hospitalization, Other)
  Sender: FDA-Public Use
  Company Number: US-ROCHE-1328094

PATIENT
  Age: 67 Year
  Sex: Female
  Weight: 58 kg

DRUGS (1)
  1. TRASTUZUMAB. [Suspect]
     Active Substance: TRASTUZUMAB
     Indication: METASTASES TO MENINGES
     Route: 037
     Dates: start: 20131223, end: 20131226

REACTIONS (11)
  - Confusional state [Recovered/Resolved]
  - Hypotension [Recovered/Resolved]
  - Urinary incontinence [Not Recovered/Not Resolved]
  - Sepsis [Not Recovered/Not Resolved]
  - Somnolence [Recovered/Resolved]
  - Platelet count decreased [Recovered/Resolved]
  - Hydrocephalus [Recovered/Resolved]
  - Hypoxia [Recovered/Resolved]
  - Muscular weakness [Not Recovered/Not Resolved]
  - Febrile neutropenia [Recovered/Resolved]
  - Respiratory failure [Not Recovered/Not Resolved]

NARRATIVE: CASE EVENT DATE: 20131228
